FAERS Safety Report 11481439 (Version 1)
Quarter: 2015Q3

REPORT INFORMATION
  Report Type: Report from Study
  Country: US (occurrence: US)
  Receive Date: 20150909
  Receipt Date: 20150909
  Transmission Date: 20151125
  Serious: Yes (Death)
  Sender: FDA-Public Use
  Company Number: US-AMAG PHARMACEUTICALS, INC.-AMAG201500992

PATIENT

DRUGS (2)
  1. PROHANCE [Concomitant]
     Active Substance: GADOTERIDOL
     Indication: IMAGING PROCEDURE
     Dosage: 28 ML, SINGLE AT 3ML/SEC
     Route: 042
     Dates: start: 20150723, end: 20150723
  2. FERUMOXYTOL [Suspect]
     Active Substance: FERUMOXYTOL
     Indication: IMAGING PROCEDURE
     Dosage: 510 MG, SINGLE
     Route: 042
     Dates: start: 20150724

REACTIONS (3)
  - Subdural haematoma [Fatal]
  - Brain herniation [Fatal]
  - Fall [Unknown]

NARRATIVE: CASE EVENT DATE: 20150824
